FAERS Safety Report 4666754-4 (Version None)
Quarter: 2005Q2

REPORT INFORMATION
  Report Type: 
  Country: None (occurrence: None)
  Receive Date: 20050429
  Receipt Date: 20050418
  Transmission Date: 20051028
  Serious: Yes (Death)
  Sender: FDA-Public Use
  Company Number: MK200503-0289-2

PATIENT
  Age: 64 Year
  Sex: Male

DRUGS (2)
  1. NEUTROSPEC [Suspect]
     Indication: INFECTION
     Dosage: 2-23 MCI, ONCE, IV
     Route: 042
     Dates: start: 20050318, end: 20050318
  2. ANTIBIOTICS [Concomitant]

REACTIONS (8)
  - CARDIO-RESPIRATORY ARREST [None]
  - CHILLS [None]
  - CIRCULATORY COLLAPSE [None]
  - FALL [None]
  - MYOCARDIAL INFARCTION [None]
  - PULMONARY EMBOLISM [None]
  - PULSE ABNORMAL [None]
  - PYREXIA [None]
